FAERS Safety Report 4555668-6 (Version None)
Quarter: 2005Q1

REPORT INFORMATION
  Report Type: 
  Country: None (occurrence: None)
  Receive Date: 20050105
  Receipt Date: 20041108
  Transmission Date: 20050727
  Serious: No
  Sender: FDA-Public Use
  Company Number: SU-2004-002823

PATIENT
  Age: 72 Year
  Sex: Male

DRUGS (4)
  1. BENICAR HCT [Suspect]
     Indication: HYPERTENSION
     Dosage: 12.5 MG QD PO
     Route: 048
     Dates: start: 20040808, end: 20041030
  2. DOXAZOSIN [Concomitant]
  3. LIPITOR [Concomitant]
  4. CELEBREX [Concomitant]

REACTIONS (2)
  - MYALGIA [None]
  - PARAESTHESIA [None]
